FAERS Safety Report 25905082 (Version 1)
Quarter: 2025Q4

REPORT INFORMATION
  Report Type: Spontaneous
  Country: CA (occurrence: CA)
  Receive Date: 20251010
  Receipt Date: 20251010
  Transmission Date: 20260118
  Serious: Yes (Other)
  Sender: SANDOZ
  Company Number: CA-002147023-NVSC2025CA153392

PATIENT
  Sex: Female

DRUGS (2)
  1. MYCOPHENOLATE MOFETIL [Suspect]
     Active Substance: MYCOPHENOLATE MOFETIL
     Indication: Blood immunoglobulin A
     Dosage: 500 MG, QD (AIM WAS TO INCREASE TO  1000 MG PO BID, ONE COURSE -  DISCONTINUED FOR ALLERGY REQUIRING
     Route: 048
     Dates: start: 20250730, end: 20250730
  2. CANDESARTAN [Concomitant]
     Active Substance: CANDESARTAN
     Indication: Product used for unknown indication
     Dosage: 4 MG, QD (DOSE INCREASE LIMITED BY  HYPOTENSION)
     Route: 048

REACTIONS (6)
  - Glomerulosclerosis [Unknown]
  - Kidney fibrosis [Unknown]
  - Renal tubular atrophy [Unknown]
  - Arteriosclerosis [Unknown]
  - Proteinuria [Unknown]
  - Off label use [Unknown]

NARRATIVE: CASE EVENT DATE: 20250730
